FAERS Safety Report 5258911-3 (Version None)
Quarter: 2007Q1

REPORT INFORMATION
  Report Type: 
  Country: None (occurrence: None)
  Receive Date: 20061117
  Receipt Date: 20060808
  Transmission Date: 20070707
  Serious: Yes (Other)
  Sender: FDA-Public Use
  Company Number: US-JNJFOC-20060802384

PATIENT
  Sex: Male

DRUGS (2)
  1. LEVAQUIN [Suspect]
     Indication: PNEUMONIA
     Dosage: 750 MG, 1 IN 1 DAY, ORAL
     Route: 048
     Dates: start: 20060717, end: 20060722
  2. LEVAQUIN [Suspect]
     Indication: PNEUMONIA
     Dosage: 750 MG, INTRAVENOUS
     Route: 042

REACTIONS (5)
  - CRYSTAL URINE PRESENT [None]
  - ELECTROLYTE IMBALANCE [None]
  - HYPERTENSION [None]
  - HYPONATRAEMIA [None]
  - WEIGHT DECREASED [None]
